FAERS Safety Report 7821150-3 (Version None)
Quarter: 2011Q4

REPORT INFORMATION
  Report Type: 
  Country: None (occurrence: None)
  Receive Date: 20111018
  Receipt Date: 20111011
  Transmission Date: 20120403
  Serious: Yes (Hospitalization)
  Sender: FDA-Public Use
  Company Number: US-UCBSA-043276

PATIENT
  Age: 52 Year
  Sex: Male
  Weight: 118 kg

DRUGS (5)
  1. CIMZIA [Suspect]
     Route: 058
     Dates: start: 20100428, end: 20100526
  2. PREDNISONE [Concomitant]
     Indication: CROHN'S DISEASE
     Dates: start: 20080201
  3. CIMZIA [Suspect]
     Route: 058
     Dates: start: 20100609, end: 20100915
  4. CIMZIA [Suspect]
     Indication: CROHN'S DISEASE
     Dosage: 400 MG
     Route: 058
     Dates: start: 20110111
  5. ACETAMINOPHEN [Concomitant]
     Indication: CROHN'S DISEASE

REACTIONS (1)
  - SEPSIS [None]
